FAERS Safety Report 18506974 (Version 2)
Quarter: 2020Q4

REPORT INFORMATION
  Report Type: Spontaneous
  Country: US (occurrence: US)
  Receive Date: 20201116
  Receipt Date: 20201210
  Transmission Date: 20210114
  Serious: Yes (Other)
  Sender: FDA-Public Use
  Company Number: US-PFIZER INC-2020445399

PATIENT
  Age: 57 Year
  Sex: Female
  Weight: 77.1 kg

DRUGS (1)
  1. IBRANCE [Suspect]
     Active Substance: PALBOCICLIB
     Indication: BREAST CANCER FEMALE
     Dosage: 125 MG, CYCLIC (DAILY 21 DAYS)
     Route: 048
     Dates: start: 20201030

REACTIONS (3)
  - COVID-19 [Unknown]
  - Anosmia [Unknown]
  - Nausea [Unknown]

NARRATIVE: CASE EVENT DATE: 2020
